FAERS Safety Report 12871421 (Version 1)
Quarter: 2016Q4

REPORT INFORMATION
  Report Type: Spontaneous
  Country: JP (occurrence: JP)
  Receive Date: 20161020
  Receipt Date: 20161020
  Transmission Date: 20170207
  Serious: Yes (Other)
  Sender: FDA-Public Use
  Company Number: JP-MYLANLABS-2016M1043864

PATIENT

DRUGS (1)
  1. PREDNISOLONE. [Suspect]
     Active Substance: PREDNISOLONE
     Indication: MYASTHENIA GRAVIS
     Dosage: 10 MG, QD
     Route: 048

REACTIONS (4)
  - Chorioretinopathy [Recovering/Resolving]
  - Macular detachment [Recovering/Resolving]
  - Retinal detachment [Recovering/Resolving]
  - Device dislocation [Recovering/Resolving]
